FAERS Safety Report 6469289-1 (Version None)
Quarter: 2009Q4

REPORT INFORMATION
  Report Type: 
  Country: None (occurrence: None)
  Receive Date: 20091203
  Receipt Date: 20080917
  Transmission Date: 20100525
  Serious: Yes (Hospitalization)
  Sender: FDA-Public Use
  Company Number: JP-ELI_LILLY_AND_COMPANY-JP200702002879

PATIENT
  Age: 69 Year
  Sex: Female

DRUGS (4)
  1. GEMCITABINE HCL [Suspect]
     Indication: BILE DUCT CANCER STAGE IV
     Dosage: 1000 MG/M2, OTHER
     Route: 042
     Dates: start: 20060901, end: 20060901
  2. GEMCITABINE HCL [Suspect]
     Dosage: 1000 MG, OTHER
     Route: 042
     Dates: start: 20060101, end: 20070126
  3. DEPAS [Concomitant]
     Dosage: 0.5 MG, UNKNOWN
     Route: 065
     Dates: start: 20060801
  4. INSULIN [Concomitant]
     Indication: DIABETES MELLITUS
     Dosage: UNK, UNKNOWN
     Route: 065

REACTIONS (8)
  - BLOOD CREATINE PHOSPHOKINASE INCREASED [None]
  - MUSCULAR WEAKNESS [None]
  - PAIN IN EXTREMITY [None]
  - PLATELET COUNT DECREASED [None]
  - PYREXIA [None]
  - RENAL FAILURE ACUTE [None]
  - RHABDOMYOLYSIS [None]
  - URTICARIA [None]
